FAERS Safety Report 4723875-5 (Version None)
Quarter: 2005Q3

REPORT INFORMATION
  Report Type: 
  Country: None (occurrence: None)
  Receive Date: 20050721
  Receipt Date: 20050708
  Transmission Date: 20060218
  Serious: Yes (Other)
  Sender: FDA-Public Use
  Company Number: HQWYE155812JUL05

PATIENT
  Age: 11 Year
  Sex: Female
  Weight: 36.32 kg

DRUGS (2)
  1. ADVIL COLD AND SINUS [Suspect]
     Indication: NASOPHARYNGITIS
     Dosage: 2 TSP 2X PER 1 DAY, ORAL
     Route: 048
     Dates: start: 20050707, end: 20050707
  2. ADVIL COLD AND SINUS [Suspect]
     Indication: PYREXIA
     Dosage: 2 TSP 2X PER 1 DAY, ORAL
     Route: 048
     Dates: start: 20050707, end: 20050707

REACTIONS (4)
  - APHASIA [None]
  - EYE DISORDER [None]
  - LIP DISCOLOURATION [None]
  - URTICARIA [None]
